FAERS Safety Report 10274946 (Version 1)
Quarter: 2014Q3

REPORT INFORMATION
  Report Type: Spontaneous
  Country: US (occurrence: US)
  Receive Date: 20140703
  Receipt Date: 20140703
  Transmission Date: 20150326
  Serious: Yes (Hospitalization, Other)
  Sender: FDA-Public Use
  Company Number: US-AMGEN INC.-USASP2014049436

PATIENT
  Age: 67 Year
  Sex: Male
  Weight: 98.87 kg

DRUGS (1)
  1. PROCRIT [Suspect]
     Active Substance: ERYTHROPOIETIN
     Indication: ANAEMIA
     Dosage: 10000 UNIT, 3 TIMES/WK
     Route: 058
     Dates: start: 2013, end: 2013

REACTIONS (3)
  - Asthenia [Not Recovered/Not Resolved]
  - Clostridium difficile infection [Recovered/Resolved]
  - Blood count abnormal [Not Recovered/Not Resolved]

NARRATIVE: CASE EVENT DATE: 201310
